FAERS Safety Report 6804395-0 (Version None)
Quarter: 2010Q2

REPORT INFORMATION
  Report Type: 
  Country: None (occurrence: None)
  Receive Date: 20100628
  Receipt Date: 20070509
  Transmission Date: 20101027
  Serious: No
  Sender: FDA-Public Use
  Company Number: US-PFIZER INC-2007019885

PATIENT
  Sex: Female
  Weight: 67.1 kg

DRUGS (5)
  1. SOMAVERT [Suspect]
     Indication: ACROMEGALY
     Route: 058
  2. SYNTHROID [Concomitant]
  3. CLARINEX [Concomitant]
  4. BENADRYL [Concomitant]
  5. PERCOCET [Concomitant]

REACTIONS (2)
  - ANGIOEDEMA [None]
  - INJECTION SITE URTICARIA [None]
